FAERS Safety Report 7135300-8 (Version None)
Quarter: 2010Q4

REPORT INFORMATION
  Report Type: 
  Country: None (occurrence: None)
  Receive Date: 20101203
  Receipt Date: 20101201
  Transmission Date: 20110411
  Serious: Yes (Other)
  Sender: FDA-Public Use
  Company Number: B0665749A

PATIENT
  Sex: Male

DRUGS (1)
  1. ARRANON [Suspect]
     Dosage: 2000MG PER DAY
     Route: 042
     Dates: start: 20100602

REACTIONS (1)
  - BLOOD CREATINE PHOSPHOKINASE INCREASED [None]
